FAERS Safety Report 14958030 (Version 1)
Quarter: 2018Q2

REPORT INFORMATION
  Report Type: Report from Study
  Country: US (occurrence: US)
  Receive Date: 20180531
  Receipt Date: 20180531
  Transmission Date: 20180711
  Serious: Yes (Other)
  Sender: FDA-Public Use
  Company Number: US-MYLANLABS-2018M1022466

PATIENT
  Sex: Female
  Weight: 62.13 kg

DRUGS (1)
  1. AMNESTEEM [Suspect]
     Active Substance: ISOTRETINOIN
     Indication: ACNE
     Dosage: 20 MG, UNK
     Route: 065
     Dates: start: 20171214, end: 20180315

REACTIONS (1)
  - Burning sensation [Unknown]
